FAERS Safety Report 6933803-X (Version None)
Quarter: 2010Q3

REPORT INFORMATION
  Report Type: 
  Country: None (occurrence: None)
  Receive Date: 20100817
  Receipt Date: 20100107
  Transmission Date: 20110219
  Serious: Yes (Hospitalization, Other)
  Sender: FDA-Public Use
  Company Number: 2010SP002128

PATIENT
  Age: 24 Year
  Sex: Female
  Weight: 93.8946 kg

DRUGS (4)
  1. NUVARING [Suspect]
     Indication: CONTRACEPTION
     Dosage: VAG
     Route: 067
     Dates: start: 20060401, end: 20080101
  2. NUVARING [Suspect]
     Indication: DYSMENORRHOEA
     Dosage: VAG
     Route: 067
     Dates: start: 20060401, end: 20080101
  3. NUVARING [Suspect]
     Indication: MENORRHAGIA
     Dosage: VAG
     Route: 067
     Dates: start: 20060401, end: 20080101
  4. SYNTHROID (CON.) [Concomitant]

REACTIONS (14)
  - ATELECTASIS [None]
  - BACK PAIN [None]
  - CHEST DISCOMFORT [None]
  - DEEP VEIN THROMBOSIS [None]
  - DEPRESSION [None]
  - LIBIDO DISORDER [None]
  - MULTIPLE INJURIES [None]
  - MUSCLE SPASMS [None]
  - PAIN [None]
  - PHARYNGITIS [None]
  - PULMONARY EMBOLISM [None]
  - REFUSAL OF TREATMENT BY PATIENT [None]
  - SINUSITIS [None]
  - URINARY TRACT INFECTION BACTERIAL [None]
